FAERS Safety Report 8141861-2 (Version None)
Quarter: 2012Q1

REPORT INFORMATION
  Report Type: 
  Country: None (occurrence: None)
  Receive Date: 20120216
  Receipt Date: 20120213
  Transmission Date: 20120608
  Serious: Yes (Other)
  Sender: FDA-Public Use
  Company Number: CA-PFIZER INC-2012039167

PATIENT
  Age: 46 Year
  Sex: Female

DRUGS (2)
  1. VENLAFAXINE HCL [Suspect]
     Dosage: 150 MG, UNK
  2. EFFEXOR [Suspect]

REACTIONS (3)
  - HEAD INJURY [None]
  - THERAPEUTIC RESPONSE UNEXPECTED [None]
  - ROAD TRAFFIC ACCIDENT [None]
